FAERS Safety Report 4565814-6 (Version None)
Quarter: 2005Q1

REPORT INFORMATION
  Report Type: 
  Country: None (occurrence: None)
  Receive Date: 20050128
  Receipt Date: 20050118
  Transmission Date: 20050727
  Serious: Yes (Death)
  Sender: FDA-Public Use
  Company Number: 2002001580-FJ

PATIENT
  Age: 47 Year
  Sex: Male

DRUGS (2)
  1. PROGRAF [Suspect]
     Indication: BONE MARROW TRANSPLANT
     Dates: start: 20010604, end: 20010629
  2. SOLU-MEDROL [Concomitant]

REACTIONS (6)
  - CEREBRAL DISORDER [None]
  - CEREBRAL HAEMORRHAGE [None]
  - CONVULSION [None]
  - ENCEPHALITIS HERPES [None]
  - ENCEPHALOPATHY [None]
  - THROMBOTIC MICROANGIOPATHY [None]
